FAERS Safety Report 7916709-9 (Version None)
Quarter: 2011Q4

REPORT INFORMATION
  Report Type: 
  Country: None (occurrence: None)
  Receive Date: 20111116
  Receipt Date: 20111108
  Transmission Date: 20120403
  Serious: Yes (Other)
  Sender: FDA-Public Use
  Company Number: US-ABBOTT-11P-163-0854102-00

PATIENT
  Sex: Female
  Weight: 57.204 kg

DRUGS (10)
  1. RELAFEN [Concomitant]
     Indication: RHEUMATOID ARTHRITIS
  2. CENTRUM SILVER [Concomitant]
     Indication: PRODUCT USED FOR UNKNOWN INDICATION
     Dosage: DAILY
  3. HUMIRA [Suspect]
     Indication: RHEUMATOID ARTHRITIS
     Dates: start: 20060801
  4. DIOVAN HCT [Concomitant]
     Indication: HYPERTENSION
     Dosage: 150/12.5MG DAILY
  5. HUMIRA [Suspect]
  6. HUMIRA [Suspect]
  7. HUMIRA [Suspect]
  8. ULTRACET [Concomitant]
     Indication: PRODUCT USED FOR UNKNOWN INDICATION
     Dosage: DAILY
  9. ACETAMINOPHEN AND HYDROCODONE BITARTRATE [Suspect]
     Indication: BACK PAIN
     Dates: start: 20110201, end: 20110201
  10. ASPIRIN [Concomitant]
     Indication: PRODUCT USED FOR UNKNOWN INDICATION

REACTIONS (11)
  - ARTHRALGIA [None]
  - JOINT SWELLING [None]
  - DECREASED APPETITE [None]
  - MALAISE [None]
  - INTERVERTEBRAL DISC DISORDER [None]
  - NAUSEA [None]
  - WEIGHT DECREASED [None]
  - RHEUMATOID ARTHRITIS [None]
  - TREATMENT FAILURE [None]
  - BACK PAIN [None]
  - BONE PAIN [None]
